FAERS Safety Report 7845376 (Version 8)
Quarter: 2013Q1

REPORT INFORMATION
  Report Type: Spontaneous
  Country: US (occurrence: US)
  Receive Date: 20110308
  Receipt Date: 20130116
  Transmission Date: 20140127
  Serious: Yes (Hospitalization, Other)
  Sender: FDA-Public Use
  Company Number: US-ASTRAZENECA-2011SE10929

PATIENT
  Age: 53 Year
  Sex: Female
  Weight: 90.7 kg

DRUGS (12)
  1. SEROQUEL [Suspect]
     Indication: SLEEP DISORDER
     Route: 048
     Dates: start: 2007
  2. SEROQUEL [Suspect]
     Indication: INSOMNIA
     Route: 048
     Dates: start: 2007
  3. SEROQUEL [Suspect]
     Indication: ANXIETY
     Route: 048
     Dates: start: 2007
  4. SEROQUEL [Suspect]
     Indication: SLEEP DISORDER
     Dosage: BREAK IN HALF
     Route: 048
  5. SEROQUEL [Suspect]
     Indication: INSOMNIA
     Dosage: BREAK IN HALF
     Route: 048
  6. SEROQUEL [Suspect]
     Indication: ANXIETY
     Dosage: BREAK IN HALF
     Route: 048
  7. SEROQUEL [Suspect]
     Indication: SLEEP DISORDER
     Route: 048
  8. SEROQUEL [Suspect]
     Indication: INSOMNIA
     Route: 048
  9. SEROQUEL [Suspect]
     Indication: ANXIETY
     Route: 048
  10. SEROQUEL [Suspect]
     Indication: SLEEP DISORDER
     Route: 048
  11. SEROQUEL [Suspect]
     Indication: INSOMNIA
     Route: 048
  12. SEROQUEL [Suspect]
     Indication: ANXIETY
     Route: 048

REACTIONS (28)
  - Transient ischaemic attack [Unknown]
  - Cerebrovascular accident [Unknown]
  - Thrombosis [Unknown]
  - Multiple sclerosis [Unknown]
  - Colitis [Unknown]
  - Amnesia [Unknown]
  - Convulsion [Unknown]
  - Malaise [Unknown]
  - Nasopharyngitis [Unknown]
  - Insomnia [Unknown]
  - Therapeutic response unexpected [Unknown]
  - Anxiety [Unknown]
  - Cellulitis [Unknown]
  - Panic attack [Unknown]
  - Pain [Unknown]
  - Deafness [Unknown]
  - Cerumen impaction [Unknown]
  - Nervousness [Unknown]
  - Fibromyalgia [Unknown]
  - Multiple allergies [Unknown]
  - Ear discomfort [Unknown]
  - Limb discomfort [Unknown]
  - Dyslexia [Unknown]
  - Weight increased [Unknown]
  - Local swelling [Unknown]
  - Intentional drug misuse [Unknown]
  - Drug dose omission [Unknown]
  - Off label use [Unknown]
